FAERS Safety Report 12335223 (Version 2)
Quarter: 2016Q2

REPORT INFORMATION
  Report Type: Report from Study
  Country: US (occurrence: US)
  Receive Date: 20160504
  Receipt Date: 20160505
  Transmission Date: 20160815
  Serious: Yes (Other)
  Sender: FDA-Public Use
  Company Number: US-ABBVIE-16P-163-1616762-00

PATIENT
  Sex: Male

DRUGS (4)
  1. SYNTHROID [Suspect]
     Active Substance: LEVOTHYROXINE SODIUM
     Indication: PRODUCT USED FOR UNKNOWN INDICATION
     Dosage: 225 MCG EACH MORNING
     Route: 048
  2. SEROQUEL [Concomitant]
     Active Substance: QUETIAPINE FUMARATE
     Indication: PRODUCT USED FOR UNKNOWN INDICATION
     Dosage: 1.5 TABS BEDTIME
     Route: 048
  3. KLONOPIN [Concomitant]
     Active Substance: CLONAZEPAM
     Indication: PRODUCT USED FOR UNKNOWN INDICATION
     Route: 048
  4. DEPAKOTE ER [Suspect]
     Active Substance: DIVALPROEX SODIUM
     Indication: PRODUCT USED FOR UNKNOWN INDICATION
     Dosage: 3 P.O. IN AM AND 2 P.O.  NIGHT TIME
     Route: 048

REACTIONS (10)
  - Gait disturbance [Unknown]
  - Dyslipidaemia [Unknown]
  - Psychotic disorder [Unknown]
  - Obesity [Unknown]
  - Depression [Unknown]
  - Bipolar disorder [Unknown]
  - Eye disorder [Unknown]
  - Hypothyroidism [Unknown]
  - Dyskinesia [Unknown]
  - Hypertransaminasaemia [Unknown]
